FAERS Safety Report 23398108 (Version 1)
Quarter: 2024Q1

REPORT INFORMATION
  Report Type: Spontaneous
  Country: None (occurrence: US)
  Receive Date: 20240112
  Receipt Date: 20240112
  Transmission Date: 20240409
  Serious: Yes (Other)
  Sender: FDA-Public Use
  Company Number: US-The Proactiv LLC-2150994

PATIENT
  Age: 66 Year
  Sex: Female

DRUGS (3)
  1. PROACTIV SOLUTION RENEWING CLEANSER [Suspect]
     Active Substance: BENZOYL PEROXIDE
     Route: 061
  2. PROACTIV REVITALIZING TONER COMBINATION THERAPY ACNE TREATMENT [Suspect]
     Active Substance: SALICYLIC ACID
     Route: 061
  3. PROACTIV REPAIRING TREATMENT [Suspect]
     Active Substance: BENZOYL PEROXIDE
     Route: 061

REACTIONS (1)
  - Skin cancer [Unknown]
